FAERS Safety Report 8064442-8 (Version None)
Quarter: 2012Q1

REPORT INFORMATION
  Report Type: 
  Country: None (occurrence: None)
  Receive Date: 20120123
  Receipt Date: 20120119
  Transmission Date: 20120608
  Serious: Yes (Other)
  Sender: FDA-Public Use
  Company Number: AU-PFIZER INC-2011309273

PATIENT
  Age: 56 Year
  Sex: Male

DRUGS (3)
  1. SYMBICORT [Concomitant]
     Indication: ASTHMA
     Dosage: 200/6
     Route: 055
  2. LIPITOR [Suspect]
     Indication: HYPERCHOLESTEROLAEMIA
     Dosage: 10 MG, 1X/DAY
     Route: 048
     Dates: start: 20111201, end: 20111219
  3. MICARDIS HCT [Concomitant]
     Indication: HYPERTENSION
     Dosage: 12.5MG/40MG
     Route: 048

REACTIONS (5)
  - PAIN IN EXTREMITY [None]
  - BLOOD CREATINE PHOSPHOKINASE INCREASED [None]
  - MYOGLOBIN BLOOD INCREASED [None]
  - RHABDOMYOLYSIS [None]
  - MUSCULOSKELETAL PAIN [None]
